FAERS Safety Report 20803907 (Version 5)
Quarter: 2022Q3

REPORT INFORMATION
  Report Type: Report from Study
  Country: CA (occurrence: CA)
  Receive Date: 20220509
  Receipt Date: 20220913
  Transmission Date: 20221027
  Serious: Yes (Other)
  Sender: FDA-Public Use
  Company Number: CA-TAKEDA-2022TUS030762

PATIENT
  Age: 35 Year
  Sex: Male

DRUGS (4)
  1. VEDOLIZUMAB [Suspect]
     Active Substance: VEDOLIZUMAB
     Indication: Crohn^s disease
     Dosage: 300 MILLIGRAM
     Route: 042
     Dates: start: 20220201
  2. VEDOLIZUMAB [Suspect]
     Active Substance: VEDOLIZUMAB
     Dosage: 300 MILLIGRAM, Q4WEEKS
     Route: 042
     Dates: start: 20220607
  3. PREDNISONE [Concomitant]
     Active Substance: PREDNISONE
     Indication: Frequent bowel movements
     Dosage: 40 MILLIGRAM
     Dates: start: 202201
  4. PREDNISONE [Concomitant]
     Active Substance: PREDNISONE
     Indication: Haematochezia

REACTIONS (5)
  - Crohn^s disease [Unknown]
  - Haematochezia [Unknown]
  - Frequent bowel movements [Unknown]
  - Anal incontinence [Unknown]
  - Off label use [Unknown]

NARRATIVE: CASE EVENT DATE: 20220607
